FAERS Safety Report 14545441 (Version 6)
Quarter: 2018Q3

REPORT INFORMATION
  Report Type: Spontaneous
  Country: JP (occurrence: JP)
  Receive Date: 20180219
  Receipt Date: 20180810
  Transmission Date: 20181010
  Serious: Yes (Death, Hospitalization, Other)
  Sender: FDA-Public Use
  Company Number: JP-009507513-1712JPN000009J

PATIENT
  Age: 72 Year
  Sex: Male
  Weight: 51 kg

DRUGS (3)
  1. KEYTRUDA [Suspect]
     Active Substance: PEMBROLIZUMAB
     Indication: NON-SMALL CELL LUNG CANCER
     Dosage: 200 MG, Q3W
     Route: 041
     Dates: start: 20171106, end: 20171129
  2. LOXOPROFEN [Suspect]
     Active Substance: LOXOPROFEN
     Dosage: 60 MG, TID
     Route: 048
  3. LENDORMIN D [Concomitant]
     Active Substance: BROTIZOLAM
     Dosage: 0.25 MG, QD
     Route: 048

REACTIONS (5)
  - Malignant neoplasm progression [Fatal]
  - Gastric ulcer [Recovering/Resolving]
  - Dysphagia [Not Recovered/Not Resolved]
  - Pneumonia [Fatal]
  - Delirium [Unknown]

NARRATIVE: CASE EVENT DATE: 201712
